FAERS Safety Report 17706038 (Version 1)
Quarter: 2020Q2

REPORT INFORMATION
  Report Type: Spontaneous
  Country: CN (occurrence: CN)
  Receive Date: 20200424
  Receipt Date: 20200424
  Transmission Date: 20200714
  Serious: Yes (Death)
  Sender: FDA-Public Use
  Company Number: CN-JNJFOC-20200425291

PATIENT
  Age: 72 Year
  Sex: Female

DRUGS (3)
  1. SIMPONI ARIA [Suspect]
     Active Substance: GOLIMUMAB
     Route: 042
     Dates: start: 20190815
  2. SIMPONI ARIA [Suspect]
     Active Substance: GOLIMUMAB
     Indication: RHEUMATOID ARTHRITIS
     Dosage: ONE VIAL PER TIME,
     Route: 042
     Dates: start: 20190715
  3. SIMPONI ARIA [Suspect]
     Active Substance: GOLIMUMAB
     Route: 042
     Dates: start: 20190915

REACTIONS (1)
  - Lymphoma [Fatal]

NARRATIVE: CASE EVENT DATE: 201910
